FAERS Safety Report 9540064 (Version 2)
Quarter: 2013Q4

REPORT INFORMATION
  Report Type: Spontaneous
  Country: FR (occurrence: FR)
  Receive Date: 20130920
  Receipt Date: 20131016
  Transmission Date: 20140711
  Serious: Yes (Hospitalization)
  Sender: FDA-Public Use
  Company Number: FR-BAXTER-2013BAX036065

PATIENT
  Age: 57 Year
  Sex: Female
  Weight: 73.3 kg

DRUGS (6)
  1. HOLOXAN 2000 MG, POUDRE POUR USAGE PARENT?RAL [Suspect]
     Indication: UTERINE LEIOMYOSARCOMA
     Route: 042
     Dates: start: 20130722
  2. HOLOXAN 2000 MG, POUDRE POUR USAGE PARENT?RAL [Suspect]
     Route: 042
     Dates: start: 20130913
  3. UROMITEXAN 5 G/50 ML, SOLUTION INJECTABLE POUR PERFUSION EN FLACON [Suspect]
     Indication: UTERINE LEIOMYOSARCOMA
     Route: 042
     Dates: start: 20130722
  4. DOXORUBICINE [Suspect]
     Indication: UTERINE LEIOMYOSARCOMA
     Route: 042
     Dates: start: 20130722
  5. DOXORUBICINE [Suspect]
     Route: 042
     Dates: start: 20130913
  6. PRIMPERAN [Suspect]
     Indication: PROPHYLAXIS OF NAUSEA AND VOMITING
     Route: 048
     Dates: start: 20130722

REACTIONS (1)
  - Bone marrow failure [Recovered/Resolved]
